FAERS Safety Report 8463584-2 (Version None)
Quarter: 2012Q2

REPORT INFORMATION
  Report Type: 
  Country: None (occurrence: None)
  Receive Date: 20120625
  Receipt Date: 20120621
  Transmission Date: 20120825
  Serious: Yes (Hospitalization, Other)
  Sender: FDA-Public Use
  Company Number: BR-ROCHE-1033209

PATIENT
  Sex: Female
  Weight: 85 kg

DRUGS (12)
  1. ASPIRIN [Concomitant]
  2. FLUOXETINE [Concomitant]
  3. MABTHERA [Suspect]
     Indication: RHEUMATOID ARTHRITIS
     Route: 042
     Dates: start: 20110429, end: 20110429
  4. MABTHERA [Suspect]
     Indication: SCLERODERMA
  5. MABTHERA [Suspect]
     Indication: VASCULITIS
  6. OMEPRAZOLE [Concomitant]
  7. VITAMIN B-12 [Concomitant]
  8. DAFLON (BRAZIL) [Concomitant]
  9. MABTHERA [Suspect]
     Indication: ANTIPHOSPHOLIPID SYNDROME
  10. MICARDIS [Concomitant]
     Dosage: 40/12.5 MG
  11. WARFARIN SODIUM [Concomitant]
  12. FOLIC ACID [Concomitant]

REACTIONS (3)
  - SKIN ULCER [None]
  - ERYSIPELAS [None]
  - SEPSIS [None]
